FAERS Safety Report 5524421-9 (Version None)
Quarter: 2007Q4

REPORT INFORMATION
  Report Type: 
  Country: None (occurrence: None)
  Receive Date: 20071121
  Receipt Date: 20071112
  Transmission Date: 20080405
  Serious: Yes (Hospitalization)
  Sender: FDA-Public Use
  Company Number: DE-PFIZER INC-2007097200

PATIENT
  Sex: Male

DRUGS (2)
  1. SORTIS [Suspect]
     Indication: HYPERLIPIDAEMIA
     Route: 048
  2. EZETIMIBE [Concomitant]

REACTIONS (2)
  - ANGINA UNSTABLE [None]
  - CORONARY ARTERY RESTENOSIS [None]
